FAERS Safety Report 3689371 (Version 3)
Quarter: 2014Q2

REPORT INFORMATION
  Report Type: Spontaneous
  Country: US (occurrence: None)
  Receive Date: 20010723
  Receipt Date: 20140423
  Transmission Date: 20141212
  Serious: Yes (Hospitalization)
  Sender: FDA-Public Use
  Company Number: 152207B

PATIENT
  Age: 68 Year
  Sex: Female
  Weight: 99.34 kg

DRUGS (1)
  1. ADRIAMYCIN (DOXORUBICIN) INJ. USP 10MG/5ML - BEDFORD LABS, INC. [Suspect]
     Indication: CHRONIC LYMPHOCYTIC LEUKAEMIA
     Dosage: 50 MG/M2 IV DAY 1 OF 21 DAY CYCLE
     Dates: start: 20131014

REACTIONS (4)
  - Dizziness [None]
  - Concussion [None]
  - Fall [None]
  - Febrile neutropenia [None]
